FAERS Safety Report 19035305 (Version 1)
Quarter: 2021Q1

REPORT INFORMATION
  Report Type: Report from Study
  Country: US (occurrence: US)
  Receive Date: 20210320
  Receipt Date: 20210320
  Transmission Date: 20210420
  Serious: Yes (Other)
  Sender: FDA-Public Use
  Company Number: US-TAKEDA-US202024643

PATIENT
  Age: 71 Year
  Sex: Female

DRUGS (1)
  1. GAMMAGARD LIQUID [Suspect]
     Active Substance: HUMAN IMMUNOGLOBULIN G
     Indication: PRIMARY IMMUNODEFICIENCY SYNDROME
     Dosage: 11 GRAM, 1X/WEEK
     Route: 065

REACTIONS (11)
  - Urinary tract infection [Not Recovered/Not Resolved]
  - Drug hypersensitivity [Unknown]
  - Oral discomfort [Unknown]
  - Oral pruritus [Unknown]
  - Invasive ductal breast carcinoma [Unknown]
  - Throat irritation [Unknown]
  - Inability to afford medication [Unknown]
  - Therapy interrupted [Unknown]
  - Condition aggravated [Unknown]
  - Back pain [Unknown]
  - Pruritus [Recovering/Resolving]

NARRATIVE: CASE EVENT DATE: 20200729
